FAERS Safety Report 12342738 (Version 2)
Quarter: 2016Q2

REPORT INFORMATION
  Report Type: Report from Study
  Country: IT (occurrence: IT)
  Receive Date: 20160506
  Receipt Date: 20160516
  Transmission Date: 20160815
  Serious: Yes (Death)
  Sender: FDA-Public Use
  Company Number: IT-PFIZER INC-2016244926

PATIENT

DRUGS (5)
  1. EPIRUBICIN HCL [Suspect]
     Active Substance: EPIRUBICIN HYDROCHLORIDE
     Indication: PANCREATIC CARCINOMA
     Dosage: 30 MG/M2, CYCLIC (ON DAYS 1 AND 15)
     Dates: start: 201008, end: 201401
  2. CAPECITABINE. [Suspect]
     Active Substance: CAPECITABINE
     Indication: PANCREATIC CARCINOMA
     Dosage: 1250 MG/M2, CYCLIC (DAYS 1 TO 28 )
     Dates: start: 201008, end: 201401
  3. CISPLATIN. [Suspect]
     Active Substance: CISPLATIN
     Indication: PANCREATIC CARCINOMA
     Dosage: 30 MG/M2, CYCLIC  (ON DAYS 1 AND 15)
     Dates: start: 201008, end: 201401
  4. METFORMIN [Suspect]
     Active Substance: METFORMIN HYDROCHLORIDE
     Dosage: 2 G, DAILY
     Dates: start: 201008, end: 201401
  5. GEMCITABINE HYDROCHLORIDE. [Suspect]
     Active Substance: GEMCITABINE HYDROCHLORIDE
     Indication: PANCREATIC CARCINOMA
     Dosage: 800 MG/M2, CYCLIC (ON DAYS 1 AND 15)
     Dates: start: 201008, end: 201401

REACTIONS (1)
  - Death [Fatal]
